FAERS Safety Report 15178082 (Version 2)
Quarter: 2018Q3

REPORT INFORMATION
  Report Type: Spontaneous
  Country: FR (occurrence: FR)
  Receive Date: 20180721
  Receipt Date: 20180816
  Transmission Date: 20181010
  Serious: Yes (Hospitalization)
  Sender: FDA-Public Use
  Company Number: FR-AUROBINDO-AUR-APL-2018-036446

PATIENT
  Age: 80 Year
  Sex: Male
  Weight: 65 kg

DRUGS (4)
  1. ELIQUIS [Suspect]
     Active Substance: APIXABAN
     Indication: ATRIAL FIBRILLATION
     Dosage: UNK ()
     Route: 048
     Dates: end: 20180620
  2. AMIODARONE [Suspect]
     Active Substance: AMIODARONE
     Dosage: 1 DF, QD
     Route: 048
  3. ELIQUIS [Suspect]
     Active Substance: APIXABAN
     Indication: CEREBROVASCULAR ACCIDENT PROPHYLAXIS
  4. AMIODARONE [Suspect]
     Active Substance: AMIODARONE
     Indication: ATRIAL FIBRILLATION
     Dosage: 1 DOSAGE FORM, ONCE A DAY
     Route: 048

REACTIONS (3)
  - Anaemia [Unknown]
  - Ilium fracture [Unknown]
  - Haematoma [Unknown]

NARRATIVE: CASE EVENT DATE: 20180620
